FAERS Safety Report 11851821 (Version 1)
Quarter: 2015Q4

REPORT INFORMATION
  Report Type: Spontaneous
  Country: US (occurrence: US)
  Receive Date: 20151218
  Receipt Date: 20151218
  Transmission Date: 20160305
  Serious: No
  Sender: FDA-Public Use
  Company Number: US-TEVA-615927USA

PATIENT
  Sex: Male

DRUGS (3)
  1. DIAMOX SEQUELS [Suspect]
     Active Substance: ACETAZOLAMIDE
     Indication: GLAUCOMA
     Dosage: 1000 MILLIGRAM DAILY;
     Route: 065
  2. LUMIGAN [Concomitant]
     Active Substance: BIMATOPROST
  3. TRAVATAN [Concomitant]
     Active Substance: TRAVOPROST

REACTIONS (1)
  - Intraocular pressure increased [Unknown]
